FAERS Safety Report 5794273-0 (Version None)
Quarter: 2008Q2

REPORT INFORMATION
  Report Type: 
  Country: None (occurrence: None)
  Receive Date: 20080627
  Receipt Date: 20080619
  Transmission Date: 20081010
  Serious: Yes (Other)
  Sender: FDA-Public Use
  Company Number: GR-PFIZER INC-2008051896

PATIENT
  Sex: Male

DRUGS (2)
  1. MEDROL [Suspect]
  2. CORTICOSTEROID NOS [Concomitant]

REACTIONS (1)
  - MUSCLE SPASMS [None]
